FAERS Safety Report 17065687 (Version 1)
Quarter: 2019Q4

REPORT INFORMATION
  Report Type: Spontaneous
  Country: US (occurrence: US)
  Receive Date: 20191122
  Receipt Date: 20191122
  Transmission Date: 20200122
  Serious: Yes (Death)
  Sender: FDA-Public Use
  Company Number: None

PATIENT
  Age: 55 Year
  Sex: Female

DRUGS (22)
  1. LOSARTAN. [Concomitant]
     Active Substance: LOSARTAN
  2. BENLYSTA [Suspect]
     Active Substance: BELIMUMAB
     Indication: SYSTEMIC LUPUS ERYTHEMATOSUS
     Dosage: ?          OTHER FREQUENCY:EVERY 4 WEEKS;?
     Route: 042
     Dates: start: 20191009, end: 20191122
  3. CLOPIDOGREL [Concomitant]
     Active Substance: CLOPIDOGREL BISULFATE
  4. DICYCLOMINE [Concomitant]
     Active Substance: DICYCLOMINE HYDROCHLORIDE
  5. FUROSEMIDE. [Concomitant]
     Active Substance: FUROSEMIDE
  6. HYDROXYCHLOR [Concomitant]
     Active Substance: HYDROXYCHLOROQUINE
  7. METOPROLOL. [Concomitant]
     Active Substance: METOPROLOL
  8. SPIRONOLACT [Concomitant]
     Active Substance: SPIRONOLACTONE
  9. TRAMADOL. [Concomitant]
     Active Substance: TRAMADOL
  10. DULOXETINE. [Concomitant]
     Active Substance: DULOXETINE
  11. ASPIRIN. [Concomitant]
     Active Substance: ASPIRIN
  12. FEMOTIDINE [Concomitant]
  13. PANTOPROZOLE [Concomitant]
  14. PRAMIPEXOLE. [Concomitant]
     Active Substance: PRAMIPEXOLE
  15. CYPROHEPTAD [Concomitant]
  16. POT CL [Concomitant]
  17. DULERA [Concomitant]
     Active Substance: FORMOTEROL FUMARATE DIHYDRATE\MOMETASONE FUROATE
  18. LISINOPRIL. [Concomitant]
     Active Substance: LISINOPRIL
  19. METFORMIN [Concomitant]
     Active Substance: METFORMIN HYDROCHLORIDE
  20. VITAMIN D [Concomitant]
     Active Substance: VITAMIN D NOS
  21. ATORVASTATIN [Concomitant]
     Active Substance: ATORVASTATIN
  22. GLIMEPIRIDE. [Concomitant]
     Active Substance: GLIMEPIRIDE

REACTIONS (1)
  - Death [None]

NARRATIVE: CASE EVENT DATE: 20191122
